FAERS Safety Report 11164986 (Version 2)
Quarter: 2015Q2

REPORT INFORMATION
  Report Type: Report from Study
  Country: US (occurrence: US)
  Receive Date: 20150604
  Receipt Date: 20150613
  Transmission Date: 20150821
  Serious: Yes (Other)
  Sender: FDA-Public Use
  Company Number: US-BIOGENIDEC-2015BI074238

PATIENT
  Age: 29 Year
  Sex: Female
  Weight: 118 kg

DRUGS (8)
  1. ACETAMINOPHEN AND CODEINE [Concomitant]
     Active Substance: ACETAMINOPHEN\CODEINE PHOSPHATE
     Route: 048
  2. BACLOFEN. [Concomitant]
     Active Substance: BACLOFEN
     Route: 048
     Dates: start: 20150112
  3. LUNESTA [Concomitant]
     Active Substance: ESZOPICLONE
     Route: 048
     Dates: start: 20150323
  4. TRAMADOL HCL [Concomitant]
     Active Substance: TRAMADOL HYDROCHLORIDE
     Route: 048
  5. FIORICET [Concomitant]
     Active Substance: ACETAMINOPHEN\BUTALBITAL\CAFFEINE
     Route: 048
     Dates: start: 20150112
  6. TECFIDERA [Suspect]
     Active Substance: DIMETHYL FUMARATE
     Indication: MULTIPLE SCLEROSIS
     Route: 048
     Dates: start: 20150421, end: 20150508
  7. SIMVASTATIN. [Concomitant]
     Active Substance: SIMVASTATIN
     Route: 048
     Dates: start: 20150112
  8. CYCLOBENZAPRINE HCL [Concomitant]
     Active Substance: CYCLOBENZAPRINE HYDROCHLORIDE
     Route: 048
     Dates: start: 20150223

REACTIONS (4)
  - Hypersensitivity [Unknown]
  - Dermatitis allergic [Unknown]
  - Oropharyngeal spasm [Recovered/Resolved]
  - Pharyngeal oedema [Unknown]

NARRATIVE: CASE EVENT DATE: 20150505
